FAERS Safety Report 5787940-6 (Version None)
Quarter: 2008Q2

REPORT INFORMATION
  Report Type: 
  Country: None (occurrence: None)
  Receive Date: 20080625
  Receipt Date: 20080616
  Transmission Date: 20081010
  Serious: Yes (Hospitalization)
  Sender: FDA-Public Use
  Company Number: B0525400A

PATIENT
  Age: 84 Year
  Sex: Female

DRUGS (8)
  1. ARIXTRA [Suspect]
     Route: 058
     Dates: start: 20070926
  2. ACEBUTOLOL [Suspect]
     Dosage: .5TAB ALTERNATE DAYS
     Route: 048
  3. INDAPAMIDE [Suspect]
     Route: 048
  4. OXAZEPAM [Suspect]
     Indication: ANXIETY
     Route: 048
  5. PRAVASTATIN [Concomitant]
     Route: 048
  6. PREVISCAN [Concomitant]
     Route: 048
     Dates: end: 20070928
  7. LAMALINE [Concomitant]
     Indication: PAIN
     Route: 048
     Dates: start: 20070927
  8. FLECAINIDE ACETATE [Concomitant]
     Route: 048
     Dates: end: 20070928

REACTIONS (7)
  - HAEMATOMA [None]
  - HAEMOGLOBIN DECREASED [None]
  - HEAD INJURY [None]
  - LOSS OF CONSCIOUSNESS [None]
  - MALAISE [None]
  - MOBILITY DECREASED [None]
  - ORTHOSTATIC HYPOTENSION [None]
